FAERS Safety Report 6035041-4 (Version None)
Quarter: 2009Q1

REPORT INFORMATION
  Report Type: 
  Country: None (occurrence: None)
  Receive Date: 20090112
  Receipt Date: 20080609
  Transmission Date: 20090719
  Serious: No
  Sender: FDA-Public Use
  Company Number: US-ABBOTT-08P-163-0456106-00

PATIENT

DRUGS (1)
  1. NIMBEX [Suspect]
     Indication: ANAESTHESIA
     Route: 042
     Dates: start: 20080501, end: 20080501

REACTIONS (1)
  - MUSCLE TWITCHING [None]
